FAERS Safety Report 11849215 (Version 1)
Quarter: 2015Q4

REPORT INFORMATION
  Report Type: Report from Study
  Country: US (occurrence: US)
  Receive Date: 20151218
  Receipt Date: 20151218
  Transmission Date: 20160305
  Serious: Yes (Death, Hospitalization, Other)
  Sender: FDA-Public Use
  Company Number: US-009507513-1512USA007994

PATIENT
  Age: 71 Year
  Sex: Female
  Weight: 71.2 kg

DRUGS (7)
  1. REGORAFENIB [Suspect]
     Active Substance: REGORAFENIB
     Indication: COLORECTAL CANCER METASTATIC
     Dosage: 160 MG, QD
     Route: 048
     Dates: start: 20150219
  2. REGORAFENIB [Suspect]
     Active Substance: REGORAFENIB
     Dosage: 120 MG, QD
     Route: 048
     Dates: start: 20150319, end: 20150322
  3. DICLOFENAC [Suspect]
     Active Substance: DICLOFENAC
     Indication: PAIN
     Dosage: 1 %, QD
     Dates: start: 20090918, end: 20150323
  4. REGORAFENIB [Suspect]
     Active Substance: REGORAFENIB
     Dosage: 80 MG, QD
     Route: 048
     Dates: start: 20150402, end: 20150408
  5. RUXOLITINIB [Suspect]
     Active Substance: RUXOLITINIB
     Indication: COLORECTAL CANCER RECURRENT
     Dosage: 15 MG, BID
     Route: 048
     Dates: start: 20150219, end: 20150322
  6. COZAAR [Suspect]
     Active Substance: LOSARTAN POTASSIUM
     Indication: HYPERTENSION
     Dosage: 10 MG, QD
     Route: 048
     Dates: start: 20130605, end: 20150323
  7. RUXOLITINIB [Suspect]
     Active Substance: RUXOLITINIB
     Dosage: 10 MG, BID
     Route: 048
     Dates: start: 20150402, end: 20150407

REACTIONS (12)
  - Aspartate aminotransferase increased [Recovered/Resolved]
  - Cholangitis [Not Recovered/Not Resolved]
  - Acute kidney injury [Recovered/Resolved]
  - Blood bilirubin increased [Not Recovered/Not Resolved]
  - Acute kidney injury [Not Recovered/Not Resolved]
  - Back pain [Recovered/Resolved]
  - Urinary tract infection [Recovered/Resolved]
  - Disease progression [Fatal]
  - Pyrexia [Not Recovered/Not Resolved]
  - Pyrexia [Recovered/Resolved]
  - Aspartate aminotransferase increased [Not Recovered/Not Resolved]
  - Blood alkaline phosphatase increased [Not Recovered/Not Resolved]

NARRATIVE: CASE EVENT DATE: 20150322
